FAERS Safety Report 25014634 (Version 1)
Quarter: 2025Q1

REPORT INFORMATION
  Report Type: Spontaneous
  Country: US (occurrence: None)
  Receive Date: 20250226
  Receipt Date: 20250226
  Transmission Date: 20250408
  Serious: Yes (unspecified)
  Sender: FDA-CTU
  Company Number: None

PATIENT
  Age: 94 Year
  Sex: Female

DRUGS (1)
  1. ERIVEDGE [Suspect]
     Active Substance: VISMODEGIB
     Indication: Skin cancer
     Dates: start: 20241231, end: 20250226

REACTIONS (3)
  - Ageusia [None]
  - Weight decreased [None]
  - Confusional state [None]

NARRATIVE: CASE EVENT DATE: 20250226
